FAERS Safety Report 16870351 (Version 4)
Quarter: 2020Q3

REPORT INFORMATION
  Report Type: Report from Study
  Country: US (occurrence: US)
  Receive Date: 20190930
  Receipt Date: 20200825
  Transmission Date: 20201102
  Serious: Yes (Hospitalization)
  Sender: FDA-Public Use
  Company Number: US-ACTELION-A-NJ2019-189657

PATIENT
  Age: 30 Year
  Sex: Female
  Weight: 63.49 kg

DRUGS (7)
  1. VELETRI [Suspect]
     Active Substance: EPOPROSTENOL
     Dosage: 30 NG/KG, PER MIN
     Route: 042
  2. ORENITRAM [Suspect]
     Active Substance: TREPROSTINIL
     Indication: PRODUCT USED FOR UNKNOWN INDICATION
     Route: 065
  3. VELETRI [Suspect]
     Active Substance: EPOPROSTENOL
     Indication: PULMONARY ARTERIAL HYPERTENSION
     Dosage: 4 NG/KG, PER MIN
     Route: 042
  4. VELETRI [Suspect]
     Active Substance: EPOPROSTENOL
     Dosage: 6 NG/KG, PER MIN
     Route: 042
  5. VELETRI [Suspect]
     Active Substance: EPOPROSTENOL
     Dosage: 22 NG/KG, PER MIN
     Route: 042
  6. OPSUMIT [Suspect]
     Active Substance: MACITENTAN
     Indication: PULMONARY ARTERIAL HYPERTENSION
     Dosage: 10 MG
     Route: 048
  7. SILDENAFIL CITRATE. [Concomitant]
     Active Substance: SILDENAFIL CITRATE

REACTIONS (27)
  - Limb discomfort [Unknown]
  - Pain in jaw [Unknown]
  - Dyspnoea [Unknown]
  - Productive cough [Unknown]
  - Myalgia [Recovering/Resolving]
  - Laryngitis [Unknown]
  - Palpitations [Unknown]
  - Arthralgia [Unknown]
  - Dyspnoea exertional [Unknown]
  - Chest pain [Unknown]
  - Pain in extremity [Unknown]
  - Nausea [Recovering/Resolving]
  - Sinusitis [Unknown]
  - Device issue [Unknown]
  - Discharge [Unknown]
  - Catheter site pain [Unknown]
  - Abdominal tenderness [Unknown]
  - Headache [Recovering/Resolving]
  - Device connection issue [Unknown]
  - Pain [Unknown]
  - Neck pain [Recovering/Resolving]
  - Abdominal distension [Unknown]
  - Oropharyngeal pain [Unknown]
  - Scab [Unknown]
  - Fluid retention [Unknown]
  - Flushing [Unknown]
  - Fatigue [Unknown]

NARRATIVE: CASE EVENT DATE: 20190430
